FAERS Safety Report 14360305 (Version 1)
Quarter: 2018Q1

REPORT INFORMATION
  Report Type: Spontaneous
  Country: IN (occurrence: IN)
  Receive Date: 20180106
  Receipt Date: 20180106
  Transmission Date: 20180509
  Serious: Yes (Other)
  Sender: FDA-Public Use
  Company Number: IN-SUN PHARMACEUTICAL INDUSTRIES LTD-2017R1-147578

PATIENT
  Age: 34 Year
  Sex: Male

DRUGS (1)
  1. CHLORPHENIRAMINE. [Suspect]
     Active Substance: CHLORPHENIRAMINE
     Indication: SLEEP DISORDER THERAPY
     Dosage: 60 MG, DAILY
     Route: 048

REACTIONS (5)
  - Bipolar disorder [Recovered/Resolved]
  - Intentional product misuse [Recovered/Resolved]
  - Drug dependence [Recovered/Resolved]
  - Mania [Recovered/Resolved]
  - Drug withdrawal syndrome [Recovered/Resolved]
